FAERS Safety Report 7226241-6 (Version None)
Quarter: 2011Q1

REPORT INFORMATION
  Report Type: 
  Country: None (occurrence: None)
  Receive Date: 20110114
  Receipt Date: 20110104
  Transmission Date: 20110831
  Serious: Yes (Disabling, Other)
  Sender: FDA-Public Use
  Company Number: PHHY2010US88616

PATIENT
  Sex: Female
  Weight: 130 kg

DRUGS (8)
  1. FEMARA [Suspect]
     Dosage: 2.5 MG, PER DAY
     Route: 048
  2. ARIMIDEX [Suspect]
  3. CLONAZEPAM [Concomitant]
  4. EFFEXOR [Concomitant]
  5. SYNTHROID [Concomitant]
  6. PROTONIX [Concomitant]
  7. LAMICTAL [Concomitant]
  8. CENTRUM SILVER [Concomitant]

REACTIONS (4)
  - FALL [None]
  - FOOT FRACTURE [None]
  - TENDON INJURY [None]
  - LIGAMENT SPRAIN [None]
